FAERS Safety Report 9380242 (Version 1)
Quarter: 2013Q2

REPORT INFORMATION
  Report Type: Spontaneous
  Country: GB (occurrence: None)
  Receive Date: 20130628
  Receipt Date: 20130628
  Transmission Date: 20140414
  Serious: Yes (Hospitalization, Disabling, Other)
  Sender: FDA-Public Use
  Company Number: 2013R1-70085

PATIENT
  Age: 53 Year
  Sex: Male
  Weight: 80 kg

DRUGS (2)
  1. IBUPROFEN (IBUPROFEN) [Suspect]
     Indication: MUSCULOSKELETAL PAIN
     Route: 048
     Dates: start: 20130508, end: 20130513
  2. RANITIDINE (RANITIDINE) [Suspect]
     Route: 048
     Dates: start: 20130508, end: 20130516

REACTIONS (3)
  - Pemphigoid [None]
  - Stevens-Johnson syndrome [None]
  - Pain [None]
